FAERS Safety Report 17320403 (Version 1)
Quarter: 2020Q1

REPORT INFORMATION
  Report Type: Spontaneous
  Country: CN (occurrence: CN)
  Receive Date: 20200126
  Receipt Date: 20200126
  Transmission Date: 20200409
  Serious: Yes (Hospitalization)
  Sender: FDA-Public Use
  Company Number: CN-NOVOPROD-708259

PATIENT
  Age: 71 Year
  Sex: Male

DRUGS (3)
  1. AMIODARONE [Concomitant]
     Active Substance: AMIODARONE
     Dosage: UNK
  2. NOVOMIX 30 [Suspect]
     Active Substance: INSULIN ASPART
     Dosage: 4-10 UNITS
     Route: 065
  3. NOVOMIX 30 [Suspect]
     Active Substance: INSULIN ASPART
     Indication: TYPE 2 DIABETES MELLITUS
     Dosage: 8-12 UNITS TWICE A DAY FROM NOV 30
     Route: 065

REACTIONS (3)
  - Hypoglycaemic unconsciousness [Unknown]
  - Insulin autoimmune syndrome [Unknown]
  - Hypoglycaemia [Unknown]
